FAERS Safety Report 22646582 (Version 1)
Quarter: 2023Q2

REPORT INFORMATION
  Report Type: Spontaneous
  Country: RU (occurrence: RU)
  Receive Date: 20230627
  Receipt Date: 20230627
  Transmission Date: 20230722
  Serious: Yes (Other)
  Sender: FDA-Public Use
  Company Number: RU-ABBVIE-5306248

PATIENT
  Age: 36 Year
  Sex: Female
  Weight: 56 kg

DRUGS (2)
  1. KALETRA [Suspect]
     Active Substance: LOPINAVIR\RITONAVIR
     Indication: HIV infection
     Dosage: FORM STRENGTH: 250 MILLIGRAM
     Route: 048
     Dates: start: 20110407, end: 20230131
  2. LAMIVUDINE [Concomitant]
     Active Substance: LAMIVUDINE
     Indication: Product used for unknown indication
     Route: 048

REACTIONS (1)
  - Dyslipidaemia [Recovered/Resolved]

NARRATIVE: CASE EVENT DATE: 20230130
